FAERS Safety Report 9882524 (Version 5)
Quarter: 2014Q2

REPORT INFORMATION
  Report Type: Spontaneous
  Country: US (occurrence: US)
  Receive Date: 20140207
  Receipt Date: 20140619
  Transmission Date: 20141212
  Serious: Yes (Hospitalization, Disabling, Other)
  Sender: FDA-Public Use
  Company Number: US-009507513-1401USA014764

PATIENT
  Sex: Female
  Weight: 74.83 kg

DRUGS (3)
  1. FOSAMAX [Suspect]
     Indication: OSTEOPOROSIS
     Dosage: 70 MG, UNK
     Route: 048
     Dates: start: 20030328, end: 200710
  2. FOSAMAX [Suspect]
     Indication: OSTEOPENIA
     Dosage: 70 MG, UNK
     Route: 048
     Dates: start: 200712, end: 201111
  3. HORMONES (UNSPECIFIED) [Concomitant]
     Dosage: UNK
     Dates: start: 2000, end: 2011

REACTIONS (35)
  - Intramedullary rod insertion [Unknown]
  - Low turnover osteopathy [Not Recovered/Not Resolved]
  - Osteoporosis [Not Recovered/Not Resolved]
  - Stress fracture [Not Recovered/Not Resolved]
  - Femur fracture [Not Recovered/Not Resolved]
  - Knee operation [Unknown]
  - Surgery [Unknown]
  - Spinal laminectomy [Unknown]
  - Femur fracture [Unknown]
  - Femur fracture [Not Recovered/Not Resolved]
  - Haemorrhagic anaemia [Unknown]
  - Infusion site pain [Unknown]
  - Micturition urgency [Unknown]
  - Hypertension [Unknown]
  - Umbilical hernia [Unknown]
  - Anxiety [Unknown]
  - Depression [Unknown]
  - Hypothyroidism [Unknown]
  - Dehydration [Recovering/Resolving]
  - Rib fracture [Unknown]
  - Rib fracture [Unknown]
  - Rib fracture [Unknown]
  - Intervertebral disc space narrowing [Unknown]
  - Nerve root compression [Unknown]
  - Intervertebral disc space narrowing [Unknown]
  - Intervertebral disc protrusion [Unknown]
  - Spinal osteoarthritis [Unknown]
  - Osteoarthritis [Unknown]
  - Blood cholesterol increased [Unknown]
  - Gastritis [Unknown]
  - Gastrooesophageal reflux disease [Unknown]
  - Musculoskeletal pain [Unknown]
  - Asthenia [Unknown]
  - Arthralgia [Unknown]
  - Drug ineffective [Unknown]
